FAERS Safety Report 11922083 (Version 2)
Quarter: 2016Q1

REPORT INFORMATION
  Report Type: Spontaneous
  Country: US (occurrence: US)
  Receive Date: 20160115
  Receipt Date: 20160203
  Transmission Date: 20160526
  Serious: No
  Sender: FDA-Public Use
  Company Number: US-PFIZER INC-2016021521

PATIENT
  Sex: Male

DRUGS (2)
  1. VIAGRA [Suspect]
     Active Substance: SILDENAFIL CITRATE
     Dosage: UNK
  2. VIAGRA [Suspect]
     Active Substance: SILDENAFIL CITRATE
     Dosage: 350MG (3.5 PILLS OF 100MG)

REACTIONS (4)
  - Abdominal discomfort [Unknown]
  - Intentional product use issue [Unknown]
  - Drug effect incomplete [Unknown]
  - Headache [Unknown]
